FAERS Safety Report 6614977 (Version 7)
Quarter: 2015Q3

REPORT INFORMATION
  Report Type: Spontaneous
  Country: US (occurrence: US)
  Receive Date: 20080415
  Receipt Date: 20150716
  Transmission Date: 20151125
  Serious: Yes (Hospitalization, Other)
  Sender: FDA-Public Use
  Company Number: US-ROCHE-493717

PATIENT
  Age: 17 Year
  Sex: Female
  Weight: 61.2 kg

DRUGS (13)
  1. ACCUTANE [Suspect]
     Active Substance: ISOTRETINOIN
     Dosage: ACCUTANE 40 MG IN AM AND 20 MG IN PM
     Route: 065
  2. RETIN-A [Concomitant]
     Active Substance: TRETINOIN
     Indication: ACNE
     Route: 065
  3. CLEOCIN T [Concomitant]
     Active Substance: CLINDAMYCIN PHOSPHATE
     Route: 065
  4. ACCUTANE [Suspect]
     Active Substance: ISOTRETINOIN
     Dosage: INDICATION: CYSTIC ACNE.
     Route: 065
     Dates: start: 19940406, end: 19940912
  5. LEVLEN [Concomitant]
     Active Substance: ETHINYL ESTRADIOL\LEVONORGESTREL
  6. ACCUTANE [Suspect]
     Active Substance: ISOTRETINOIN
     Indication: ACNE CYSTIC
     Route: 065
     Dates: start: 19870601, end: 19870801
  7. A/T/S [Concomitant]
     Active Substance: ERYTHROMYCIN
     Route: 065
  8. AMPICILLIN [Concomitant]
     Active Substance: AMPICILLIN
     Indication: COLITIS
     Route: 065
  9. ACCUTANE [Suspect]
     Active Substance: ISOTRETINOIN
     Dosage: ACCUTANE 40 MG IN AM AND 20 MG IN PM.
     Route: 065
  10. ACCUTANE [Suspect]
     Active Substance: ISOTRETINOIN
     Dosage: ACCUTANE 40 MG IN AM AND 20 MG PM
     Route: 065
  11. BENZOYL PEROXIDE. [Concomitant]
     Active Substance: BENZOYL PEROXIDE
     Route: 065
  12. ACCUTANE [Suspect]
     Active Substance: ISOTRETINOIN
     Dosage: ACCUTANE 40 MG IN AM AND 20 MG IN PM
     Route: 065
     Dates: start: 19880602, end: 19880616
  13. MINOCIN [Concomitant]
     Active Substance: MINOCYCLINE HYDROCHLORIDE
     Route: 065

REACTIONS (18)
  - Depressed mood [Unknown]
  - Tonsillectomy [Recovered/Resolved]
  - Skin papilloma [Unknown]
  - Colitis [Unknown]
  - Adenoidectomy [Recovered/Resolved]
  - Colitis ulcerative [Not Recovered/Not Resolved]
  - Inflammatory bowel disease [Unknown]
  - Tendonitis [Unknown]
  - Myalgia [Unknown]
  - Chest discomfort [Unknown]
  - Musculoskeletal pain [Unknown]
  - Proctitis [Unknown]
  - Lip dry [Unknown]
  - Osteochondroma [Unknown]
  - Dry skin [Unknown]
  - Proctitis ulcerative [Unknown]
  - Anaemia [Recovered/Resolved]
  - Rash [Unknown]

NARRATIVE: CASE EVENT DATE: 19880705
